FAERS Safety Report 4401043-4 (Version None)
Quarter: 2004Q3

REPORT INFORMATION
  Report Type: 
  Country: None (occurrence: None)
  Receive Date: 20040907
  Receipt Date: 20031003
  Transmission Date: 20050211
  Serious: No
  Sender: FDA-Public Use
  Company Number: US-BRISTOL-MYERS SQUIBB COMPANY-12402038

PATIENT
  Age: 74 Year
  Sex: Female
  Weight: 78 kg

DRUGS (7)
  1. AVAPRO [Suspect]
     Indication: HYPERTENSION
     Route: 048
     Dates: start: 20000101
  2. PRAVACHOL [Suspect]
     Indication: BLOOD CHOLESTEROL ABNORMAL
     Dates: start: 19980901
  3. COUMADIN [Suspect]
     Indication: ATRIAL FIBRILLATION
     Dosage: DOSE VALUE: 2.5 MG ONCE DAILY FOR 6 DAYS, ALTERNATING WITH HALF OF A 2.5 MG TAB ON DAY 1 (THURSDAY).
     Dates: start: 20000101
  4. LANOXIN [Concomitant]
  5. FUROSEMIDE [Concomitant]
  6. ATENOLOL [Concomitant]
  7. PAXIL [Concomitant]

REACTIONS (6)
  - ASTHENIA [None]
  - BACK PAIN [None]
  - COUGH [None]
  - FATIGUE [None]
  - THROAT IRRITATION [None]
  - UNEVALUABLE EVENT [None]
